FAERS Safety Report 7424705-3 (Version None)
Quarter: 2011Q2

REPORT INFORMATION
  Report Type: 
  Country: None (occurrence: None)
  Receive Date: 20110419
  Receipt Date: 20110411
  Transmission Date: 20111010
  Serious: Yes (Hospitalization, Other)
  Sender: FDA-Public Use
  Company Number: US-AMGEN-USASP2011019113

PATIENT
  Age: 71 Year
  Sex: Female

DRUGS (1)
  1. ENBREL [Suspect]
     Indication: RHEUMATOID ARTHRITIS
     Dosage: 50 MG, QWK
     Dates: start: 20100208, end: 20101001

REACTIONS (5)
  - SYNOVIAL RUPTURE [None]
  - IMPAIRED HEALING [None]
  - SEPSIS [None]
  - CELLULITIS [None]
  - OEDEMA PERIPHERAL [None]
